FAERS Safety Report 4507486-2 (Version None)
Quarter: 2004Q4

REPORT INFORMATION
  Report Type: 
  Country: None (occurrence: None)
  Receive Date: 20041118
  Receipt Date: 20041105
  Transmission Date: 20050328
  Serious: Yes (Life-Threatening, Hospitalization)
  Sender: FDA-Public Use
  Company Number: 2004084094

PATIENT
  Age: 63 Year
  Sex: Female
  Weight: 37.5 kg

DRUGS (9)
  1. ZITHROMAX [Suspect]
     Indication: NASOPHARYNGITIS
     Dosage: 500 MG (1 IN 1 D), ORAL
     Route: 048
     Dates: start: 20041004, end: 20041006
  2. METILDIGOXIN (METILDIGOXIN) [Suspect]
     Indication: ILL-DEFINED DISORDER
     Dosage: 0.05 MG (0.05 D), ORAL
     Route: 048
  3. TICLOPIDINE HCL [Concomitant]
  4. SEVELAMER HYDROCHLORIDE (SEVELAMER HYDROCHLORIDE) [Concomitant]
  5. TEPRENONE (TEPRENONE) [Concomitant]
  6. TRIAZOLAM [Concomitant]
  7. SENNA LEAF (SENNA LEAF) [Concomitant]
  8. PROCAINAMIDE HYDROCHLORIDE (PROCAINAMIDE HYDROCHLORIDE) [Concomitant]
  9. DIAZEPAM [Concomitant]

REACTIONS (6)
  - ATRIAL FIBRILLATION [None]
  - LOSS OF CONSCIOUSNESS [None]
  - SUPRAVENTRICULAR EXTRASYSTOLES [None]
  - VENTRICULAR EXTRASYSTOLES [None]
  - VENTRICULAR FIBRILLATION [None]
  - VENTRICULAR TACHYCARDIA [None]
